FAERS Safety Report 9420224 (Version 2)
Quarter: 2013Q3

REPORT INFORMATION
  Report Type: Spontaneous
  Country: US (occurrence: US)
  Receive Date: 20130725
  Receipt Date: 20130808
  Transmission Date: 20140515
  Serious: No
  Sender: FDA-Public Use
  Company Number: US-PFIZER INC-2013217158

PATIENT
  Sex: Female

DRUGS (4)
  1. NEURONTIN [Suspect]
     Dosage: 600
  2. LIPITOR [Suspect]
     Dosage: 40
  3. NORVASC [Suspect]
     Dosage: 10
  4. DETROL LA [Suspect]
     Dosage: 4 MG, UNK

REACTIONS (1)
  - Nasal congestion [Unknown]
